FAERS Safety Report 7583908-8 (Version None)
Quarter: 2011Q2

REPORT INFORMATION
  Report Type: 
  Country: None (occurrence: None)
  Receive Date: 20110623
  Receipt Date: 20110609
  Transmission Date: 20111010
  Serious: Yes (Hospitalization)
  Sender: FDA-Public Use
  Company Number: GER/USA/11/0018756

PATIENT
  Age: 13 Year
  Sex: Male
  Weight: 53.2 kg

DRUGS (10)
  1. UNSPECIFIED ANTICHOLINESTERASE (ANTICHOLINESTERASES) [Suspect]
     Indication: PRODUCT USED FOR UNKNOWN INDICATION
  2. ISOFLURANE [Suspect]
     Indication: PRODUCT USED FOR UNKNOWN INDICATION
  3. POTASSIUM SUPPLEMENTS (POTASSIUM) [Concomitant]
  4. MEXILETINE HCL [Concomitant]
  5. SEVOFLURANE [Suspect]
     Indication: PRODUCT USED FOR UNKNOWN INDICATION
  6. UNSPECIFIED ANTICHOLINERGIC (ANTICHOLINERGICS) [Suspect]
     Indication: PRODUCT USED FOR UNKNOWN INDICATION
  7. NADOLOL [Concomitant]
  8. VECURONIUM (VECURONIUM) [Concomitant]
  9. DESFLURANE [Suspect]
     Indication: PRODUCT USED FOR UNKNOWN INDICATION
  10. ONDANSETRON [Suspect]
     Indication: PRODUCT USED FOR UNKNOWN INDICATION

REACTIONS (2)
  - VENTRICULAR TACHYCARDIA [None]
  - EXTRASYSTOLES [None]
